FAERS Safety Report 9393051 (Version 1)
Quarter: 2013Q3

REPORT INFORMATION
  Report Type: Spontaneous
  Country: EE (occurrence: EE)
  Receive Date: 20130710
  Receipt Date: 20130710
  Transmission Date: 20140515
  Serious: Yes (Hospitalization, Other)
  Sender: FDA-Public Use
  Company Number: EE-PFIZER INC-2013202180

PATIENT
  Age: 71 Year
  Sex: Female
  Weight: 70 kg

DRUGS (2)
  1. NEURONTIN [Suspect]
     Indication: NEURALGIA
     Dosage: 1200 MG (300MG+300MG+600MG)
     Route: 048
     Dates: start: 20130218, end: 20130614
  2. ENAHEXALCOMP [Concomitant]
     Indication: HYPERTENSION
     Dosage: 20 MG/12.5 MG, 1X/DAY
     Route: 048

REACTIONS (4)
  - Haematoma [Recovering/Resolving]
  - Purpura [Recovering/Resolving]
  - Skin ulcer [Unknown]
  - Pain [Unknown]
